FAERS Safety Report 10407165 (Version 4)
Quarter: 2016Q4

REPORT INFORMATION
  Report Type: Spontaneous
  Country: US (occurrence: US)
  Receive Date: 20140825
  Receipt Date: 20161003
  Transmission Date: 20170206
  Serious: Yes (Hospitalization, Other)
  Sender: FDA-Public Use
  Company Number: US-GLAXOSMITHKLINE-A1086382A

PATIENT
  Sex: Female

DRUGS (22)
  1. FENOFIBRATE. [Concomitant]
     Active Substance: FENOFIBRATE
  2. MECLIZINE [Concomitant]
     Active Substance: MECLIZINE HYDROCHLORIDE
  3. FLOVENT [Suspect]
     Active Substance: FLUTICASONE PROPIONATE
     Indication: MULTIPLE ALLERGIES
     Dosage: 1 PUFF(S), QD
     Route: 055
  4. VENTOLIN [Suspect]
     Active Substance: ALBUTEROL SULFATE
     Indication: DYSPNOEA
     Dosage: 90 MCG; AS NEEDED
     Route: 055
     Dates: start: 2010
  5. LIPITOR [Concomitant]
     Active Substance: ATORVASTATIN CALCIUM
  6. FLONASE [Suspect]
     Active Substance: FLUTICASONE PROPIONATE
     Indication: DYSPNOEA
     Dosage: 1 UNK, UNK
     Route: 045
     Dates: start: 2010
  7. FLONASE [Suspect]
     Active Substance: FLUTICASONE PROPIONATE
     Indication: RHINITIS ALLERGIC
     Dosage: UNK
     Route: 045
  8. ISOSORBIDE. [Concomitant]
     Active Substance: ISOSORBIDE
  9. LISINOPRIL. [Concomitant]
     Active Substance: LISINOPRIL
  10. FLOVENT [Suspect]
     Active Substance: FLUTICASONE PROPIONATE
     Indication: ASTHMA
     Dosage: 2 PUFF(S), BID
     Route: 055
     Dates: start: 2008
  11. METFORMIN [Concomitant]
     Active Substance: METFORMIN HYDROCHLORIDE
  12. AMLODIPINE [Concomitant]
     Active Substance: AMLODIPINE BESYLATE
  13. ALLEGRA [Concomitant]
     Active Substance: FEXOFENADINE HYDROCHLORIDE
  14. FLOVENT [Suspect]
     Active Substance: FLUTICASONE PROPIONATE
     Indication: DYSPNOEA
     Dosage: 2 PUFF(S), UNK
     Route: 055
     Dates: start: 2010
  15. VENTOLIN [Suspect]
     Active Substance: ALBUTEROL SULFATE
     Indication: ASTHMA
  16. NEXIUM [Concomitant]
     Active Substance: ESOMEPRAZOLE MAGNESIUM
  17. ALPRAZOLAM. [Concomitant]
     Active Substance: ALPRAZOLAM
  18. LASIX [Concomitant]
     Active Substance: FUROSEMIDE
  19. CARVEDILOL. [Concomitant]
     Active Substance: CARVEDILOL
  20. ASPIRIN. [Concomitant]
     Active Substance: ASPIRIN
  21. FLONASE [Suspect]
     Active Substance: FLUTICASONE PROPIONATE
     Indication: MULTIPLE ALLERGIES
  22. BUPROPION. [Concomitant]
     Active Substance: BUPROPION

REACTIONS (22)
  - Dyspnoea [Recovered/Resolved]
  - Tremor [Recovered/Resolved]
  - Blood glucose abnormal [Unknown]
  - Cardiac disorder [Recovered/Resolved]
  - Loss of consciousness [Unknown]
  - Carotid artery occlusion [Unknown]
  - Intentional underdose [Unknown]
  - Product use issue [Unknown]
  - Asthma [Recovered/Resolved]
  - Lung disorder [Recovered/Resolved]
  - Cerebrovascular accident [Unknown]
  - Coma [Unknown]
  - Malaise [Recovered/Resolved]
  - Seasonal allergy [Recovered/Resolved]
  - Off label use [Unknown]
  - Transient ischaemic attack [Recovered/Resolved]
  - Hemiparesis [Recovered/Resolved]
  - Small intestine carcinoma [Recovered/Resolved]
  - Lung infection [Recovered/Resolved]
  - Sinusitis [Recovered/Resolved]
  - Pneumonia [Recovered/Resolved]
  - Blood pressure abnormal [Unknown]

NARRATIVE: CASE EVENT DATE: 2013
